FAERS Safety Report 7834872-5 (Version None)
Quarter: 2011Q4

REPORT INFORMATION
  Report Type: 
  Country: None (occurrence: None)
  Receive Date: 20111024
  Receipt Date: 20111017
  Transmission Date: 20120403
  Serious: Yes (Other)
  Sender: FDA-Public Use
  Company Number: US-JNJFOC-20111007215

PATIENT
  Sex: Female
  Weight: 70.31 kg

DRUGS (2)
  1. ULTRAM [Suspect]
     Indication: PRODUCT USED FOR UNKNOWN INDICATION
     Route: 048
     Dates: start: 20070101
  2. TRAMADOL HYDROCHLORIDE [Suspect]
     Indication: PRODUCT USED FOR UNKNOWN INDICATION
     Route: 048

REACTIONS (5)
  - UNEVALUABLE EVENT [None]
  - GASTROINTESTINAL DISORDER [None]
  - PHARYNGEAL DISORDER [None]
  - GASTRIC DISORDER [None]
  - DYSPHAGIA [None]
